FAERS Safety Report 13385087 (Version 1)
Quarter: 2017Q1

REPORT INFORMATION
  Report Type: Spontaneous
  Country: US (occurrence: US)
  Receive Date: 20170329
  Receipt Date: 20170329
  Transmission Date: 20170429
  Serious: Yes (Other)
  Sender: FDA-Public Use
  Company Number: US-BEH-2017079174

PATIENT
  Age: 13 Year
  Sex: Female
  Weight: 81.63 kg

DRUGS (23)
  1. SINGULAIR [Concomitant]
     Active Substance: MONTELUKAST SODIUM
  2. HIZENTRA [Suspect]
     Active Substance: HUMAN IMMUNOGLOBULIN G
     Indication: CYTOGENETIC ABNORMALITY
     Dosage: 10 G, UNK
     Route: 058
     Dates: start: 20160321
  3. ADVAIR HFA [Concomitant]
     Active Substance: FLUTICASONE PROPIONATE\SALMETEROL XINAFOATE
  4. LOESTRIN NOS [Concomitant]
     Active Substance: ETHINYL ESTRADIOL\NORETHINDRONE ACETATE
  5. TACROLIMUS. [Concomitant]
     Active Substance: TACROLIMUS
  6. EPIPEN [Concomitant]
     Active Substance: EPINEPHRINE
  7. NEXIUM [Concomitant]
     Active Substance: ESOMEPRAZOLE MAGNESIUM
  8. MULTIPLE VITAMINS [Concomitant]
     Active Substance: VITAMINS
  9. PROAIR HFA [Concomitant]
     Active Substance: ALBUTEROL SULFATE
  10. LIDOCAINE/PRILOCAINE [Concomitant]
     Active Substance: LIDOCAINE\PRILOCAINE
  11. HIZENTRA [Suspect]
     Active Substance: HUMAN IMMUNOGLOBULIN G
     Dosage: UNK
     Route: 058
  12. KETOCONAZOLE. [Concomitant]
     Active Substance: KETOCONAZOLE
  13. DIPHENHYDRAMINE. [Concomitant]
     Active Substance: DIPHENHYDRAMINE
  14. FLONASE [Concomitant]
     Active Substance: FLUTICASONE PROPIONATE
  15. MOMETASONE [Concomitant]
     Active Substance: MOMETASONE
  16. ACETAMINOPHEN. [Concomitant]
     Active Substance: ACETAMINOPHEN
  17. PATANASE [Concomitant]
     Active Substance: OLOPATADINE HYDROCHLORIDE
  18. OLOPATADINE [Concomitant]
     Active Substance: OLOPATADINE
  19. PROMETHAZINE [Concomitant]
     Active Substance: PROMETHAZINE\PROMETHAZINE HYDROCHLORIDE
  20. RANITIDINE. [Concomitant]
     Active Substance: RANITIDINE
  21. VASELINE                           /00473501/ [Concomitant]
  22. BACTRIM [Concomitant]
     Active Substance: SULFAMETHOXAZOLE\TRIMETHOPRIM
  23. ZYRTEC [Concomitant]
     Active Substance: CETIRIZINE HYDROCHLORIDE

REACTIONS (3)
  - Cardiac disorder [Unknown]
  - Pruritus [Unknown]
  - Dyspnoea [Unknown]

NARRATIVE: CASE EVENT DATE: 201703
